FAERS Safety Report 23473435 (Version 2)
Quarter: 2024Q1

REPORT INFORMATION
  Report Type: Spontaneous
  Country: TR (occurrence: TR)
  Receive Date: 20240203
  Receipt Date: 20240208
  Transmission Date: 20240409
  Serious: Yes (Hospitalization)
  Sender: FDA-Public Use
  Company Number: TR-Korea IPSEN-2024-00832

PATIENT
  Age: 44 Year
  Sex: Female

DRUGS (1)
  1. DYSPORT [Suspect]
     Active Substance: ABOBOTULINUMTOXINA
     Indication: Skin wrinkling
     Dosage: DAILY DOSE-64 UNITS
     Route: 030
     Dates: start: 20231229, end: 20231229

REACTIONS (5)
  - Ear swelling [Unknown]
  - Swelling [Unknown]
  - Burning sensation [Unknown]
  - Panic attack [Unknown]
  - Hypoaesthesia oral [Unknown]

NARRATIVE: CASE EVENT DATE: 20231229
